FAERS Safety Report 10431694 (Version 1)
Quarter: 2014Q3

REPORT INFORMATION
  Report Type: Spontaneous
  Country: GB (occurrence: None)
  Receive Date: 20140903
  Receipt Date: 20140903
  Transmission Date: 20150326
  Serious: Yes (Other)
  Sender: FDA-Public Use
  Company Number: GB-DEXPHARM-20140558

PATIENT
  Age: 72 Year
  Sex: Female

DRUGS (1)
  1. FORXIGA (DAPAGLIFLOZIN) [Suspect]
     Active Substance: DAPAGLIFLOZIN
     Route: 048
     Dates: start: 20140715

REACTIONS (7)
  - Haematemesis [None]
  - Hyperhidrosis [None]
  - Feeling abnormal [None]
  - Pollakiuria [None]
  - Drug ineffective [None]
  - Nausea [None]
  - Decreased appetite [None]
